FAERS Safety Report 7416835-7 (Version None)
Quarter: 2011Q2

REPORT INFORMATION
  Report Type: 
  Country: None (occurrence: None)
  Receive Date: 20110407
  Receipt Date: 20110330
  Transmission Date: 20111010
  Serious: Yes (Other)
  Sender: FDA-Public Use
  Company Number: 877069

PATIENT
  Age: 59 Year
  Sex: Female

DRUGS (3)
  1. CARBOPLATIN [Suspect]
     Indication: BREAST CANCER
     Dosage: AUC = 6,
     Dates: start: 20100101
  2. DOCETAXEL [Suspect]
     Indication: BREAST CANCER
     Dosage: 75 MG/M^2,
     Dates: start: 20100101
  3. (TRASTUZUMAB) [Suspect]
     Indication: BREAST CANCER
     Dosage: 6 MG/KG,
     Dates: start: 20100101

REACTIONS (6)
  - STOMATITIS [None]
  - DYSGEUSIA [None]
  - SKIN TOXICITY [None]
  - DERMATITIS [None]
  - SKIN ULCER [None]
  - VITAMIN D DEFICIENCY [None]
